FAERS Safety Report 4483122-9 (Version None)
Quarter: 2004Q3

REPORT INFORMATION
  Report Type: 
  Country: None (occurrence: None)
  Receive Date: 20040921
  Receipt Date: 20040609
  Transmission Date: 20050211
  Serious: Yes (Death)
  Sender: FDA-Public Use
  Company Number: 163-20785-04060145

PATIENT
  Age: 56 Year
  Sex: Female

DRUGS (4)
  1. THALOMID [Suspect]
     Indication: CHONDROSARCOMA
     Dosage: 50 MG, QHS, ORAL
     Route: 048
     Dates: start: 20040312, end: 20040325
  2. REGLAN [Concomitant]
  3. PANTOPRAZOLE (PANTOPRAZOLE) [Concomitant]
  4. ANTI-NAUSEA MEDICATION(ANTIEMETICS AND ANTINAUSEANTS) [Concomitant]

REACTIONS (3)
  - DEATH [None]
  - DISEASE PROGRESSION [None]
  - FATIGUE [None]
